FAERS Safety Report 22382854 (Version 1)
Quarter: 2023Q2

REPORT INFORMATION
  Report Type: Spontaneous
  Country: RU (occurrence: None)
  Receive Date: 20230530
  Receipt Date: 20230530
  Transmission Date: 20230722
  Serious: Yes (Other)
  Sender: FDA-Public Use
  Company Number: 2023A121086

PATIENT
  Sex: Male

DRUGS (1)
  1. PULMICORT TURBUHALER [Suspect]
     Active Substance: BUDESONIDE
     Indication: Cough
     Route: 055

REACTIONS (3)
  - Deafness [Unknown]
  - Condition aggravated [Unknown]
  - Off label use [Unknown]
